FAERS Safety Report 25121114 (Version 1)
Quarter: 2025Q1

REPORT INFORMATION
  Report Type: Report from Study
  Country: JP (occurrence: JP)
  Receive Date: 20250326
  Receipt Date: 20250326
  Transmission Date: 20250409
  Serious: Yes (Hospitalization)
  Sender: ASTELLAS
  Company Number: JP-ASTELLAS-2025-AER-004907

PATIENT
  Age: 54 Year
  Sex: Male
  Weight: 52 kg

DRUGS (6)
  1. VYLOY [Suspect]
     Active Substance: ZOLBETUXIMAB-CLZB
     Indication: Gastric cancer recurrent
     Route: 042
     Dates: start: 20250122, end: 20250122
  2. OXALIPLATIN [Suspect]
     Active Substance: OXALIPLATIN
     Indication: Gastric cancer recurrent
     Route: 042
     Dates: start: 20250122, end: 20250122
  3. CAPECITABINE [Suspect]
     Active Substance: CAPECITABINE
     Indication: Gastric cancer recurrent
     Route: 048
     Dates: start: 20250122, end: 20250205
  4. RABEPRAZOLE SODIUM [Concomitant]
     Active Substance: RABEPRAZOLE SODIUM
     Indication: Product used for unknown indication
     Dosage: AFTER BREAKFAST
     Route: 065
     Dates: end: 20250122
  5. PYRIDOXAL [Concomitant]
     Active Substance: PYRIDOXAL
     Indication: Product used for unknown indication
     Dosage: AFTER BREAKFAST AND DINNER
     Route: 065
     Dates: start: 20250122, end: 20250205
  6. Heparinoid [Concomitant]
     Indication: Product used for unknown indication
     Route: 065
     Dates: start: 20250122

REACTIONS (2)
  - Gastritis erosive [Recovered/Resolved]
  - Nausea [Recovered/Resolved]

NARRATIVE: CASE EVENT DATE: 20250122
